FAERS Safety Report 17663969 (Version 1)
Quarter: 2020Q2

REPORT INFORMATION
  Report Type: Spontaneous
  Country: US (occurrence: US)
  Receive Date: 20200414
  Receipt Date: 20200414
  Transmission Date: 20200713
  Serious: No
  Sender: FDA-Public Use
  Company Number: US-GILEAD-2020-0458763

PATIENT
  Sex: Male

DRUGS (7)
  1. AMOXICILLIN. [Concomitant]
     Active Substance: AMOXICILLIN
  2. ALLOPURINOL. [Concomitant]
     Active Substance: ALLOPURINOL
  3. BETAMETHASONE. [Concomitant]
     Active Substance: BETAMETHASONE
  4. INDOMETACIN [Concomitant]
     Active Substance: INDOMETHACIN
  5. ALBUTEROL [SALBUTAMOL] [Concomitant]
     Active Substance: ALBUTEROL
  6. SOFOSBUVIR;VELPATASVIR [Suspect]
     Active Substance: SOFOSBUVIR\VELPATASVIR
     Indication: CHRONIC HEPATITIS C
     Dosage: 1 DOSAGE FORM, QD
     Route: 048
  7. FLOMAX [MORNIFLUMATE] [Concomitant]
     Active Substance: MORNIFLUMATE

REACTIONS (2)
  - Rash pruritic [Unknown]
  - Product dose omission [Recovered/Resolved]
